FAERS Safety Report 5595926-X (Version None)
Quarter: 2008Q1

REPORT INFORMATION
  Report Type: 
  Country: None (occurrence: None)
  Receive Date: 20080118
  Receipt Date: 20080111
  Transmission Date: 20080703
  Serious: Yes (Other)
  Sender: FDA-Public Use
  Company Number: US-ASTRAZENECA-2008UW00867

PATIENT
  Age: 52 Year
  Sex: Male
  Weight: 76.7 kg

DRUGS (4)
  1. NEXIUM [Suspect]
     Indication: GASTROOESOPHAGEAL REFLUX DISEASE
     Route: 048
  2. PHENOBARB [Suspect]
  3. ASPIRIN [Concomitant]
  4. ZINC [Concomitant]

REACTIONS (1)
  - CONVULSION [None]
